FAERS Safety Report 4862255-9 (Version None)
Quarter: 2005Q4

REPORT INFORMATION
  Report Type: 
  Country: None (occurrence: None)
  Receive Date: 20051221
  Receipt Date: 20051212
  Transmission Date: 20060501
  Serious: Yes (Hospitalization)
  Sender: FDA-Public Use
  Company Number: US-AVENTIS-200520976GDDC

PATIENT
  Age: 74 Year
  Sex: Male

DRUGS (6)
  1. DOCETAXEL [Suspect]
     Indication: GASTRIC CANCER
     Dosage: DOSE: 30 MG/M2 ON DAY 1 AND 8 EVERY 21 DAYS
     Route: 042
     Dates: start: 20051125, end: 20051125
  2. IRINOTECAN HCL [Suspect]
     Indication: GASTRIC CANCER
     Dosage: DOSE: 65 MG/M2 ON DAYS 1 AND 8 EVERY 21 DAYS
     Route: 042
     Dates: start: 20051125, end: 20051125
  3. INSULIN [Concomitant]
     Indication: DIABETES MELLITUS
     Dosage: DOSE: UNK
  4. ATENOLOL [Concomitant]
     Indication: HYPERTENSION
     Dosage: DOSE: UNK
  5. PRAVACHOL [Concomitant]
     Indication: HYPERCHOLESTEROLAEMIA
     Dosage: DOSE: UNK
  6. ZETIA                                   /USA/ [Concomitant]
     Indication: HYPERCHOLESTEROLAEMIA
     Dosage: DOSE: UNK

REACTIONS (6)
  - ANAEMIA [None]
  - ANOREXIA [None]
  - DRUG DOSE OMISSION [None]
  - FATIGUE [None]
  - HICCUPS [None]
  - INSOMNIA [None]
